FAERS Safety Report 5468091-7 (Version None)
Quarter: 2007Q3

REPORT INFORMATION
  Report Type: 
  Country: None (occurrence: None)
  Receive Date: 20070921
  Receipt Date: 20070906
  Transmission Date: 20080115
  Serious: Yes (Other)
  Sender: FDA-Public Use
  Company Number: 2007RR-09868

PATIENT
  Age: 77 Year
  Sex: Male

DRUGS (8)
  1. ENALAPRIL MALEATE [Suspect]
     Indication: HYPERTENSION
     Dosage: 10 MG, ORAL
     Route: 048
  2. PLAVIX [Suspect]
     Indication: ANTICOAGULANT THERAPY
     Dosage: 75 MG, ORAL
     Route: 048
  3. SIMVASTATIN [Suspect]
     Indication: HYPERCHOLESTEROLAEMIA
     Dosage: 20 MG, ORAL
     Route: 048
  4. TAMSULOSIN                         A RILASCIO PROLOGATO (TAMSULOSIN) [Suspect]
     Indication: PROSTATIC ADENOMA
     Dosage: 400 MG, ORAL
     Route: 048
  5. FINASTERIDE [Concomitant]
  6. MAXITROL (DEXAMETHASONE; NEOMYCIN SULPHATE, POLYMYXIN B SULPHATE) [Concomitant]
  7. PARACETAMOL            (ACETAMINOPHEN/PARACETAMOL) [Concomitant]
  8. FIBROGEL         (FIBROGEL) [Concomitant]

REACTIONS (2)
  - HALLUCINATION [None]
  - NIGHTMARE [None]
